FAERS Safety Report 5717163-8 (Version None)
Quarter: 2008Q2

REPORT INFORMATION
  Report Type: 
  Country: None (occurrence: None)
  Receive Date: 20080424
  Receipt Date: 20080418
  Transmission Date: 20081010
  Serious: Yes (Other)
  Sender: FDA-Public Use
  Company Number: PHNU2008DE01605

PATIENT
  Sex: Female

DRUGS (3)
  1. CERTICAN [Suspect]
     Indication: RENAL TRANSPLANT
     Dosage: 0.75 MG, BID
     Route: 048
     Dates: start: 20080403, end: 20080409
  2. CELLCEPT [Concomitant]
     Indication: RENAL TRANSPLANT
     Dosage: 1 G, BID
  3. MYFORTIC [Suspect]
     Indication: RENAL TRANSPLANT
     Dates: start: 20080403

REACTIONS (5)
  - DISORIENTATION [None]
  - DRUG LEVEL INCREASED [None]
  - PANCYTOPENIA [None]
  - VISUAL ACUITY REDUCED [None]
  - VISUAL DISTURBANCE [None]
